FAERS Safety Report 7640073-6 (Version None)
Quarter: 2011Q3

REPORT INFORMATION
  Report Type: 
  Country: None (occurrence: None)
  Receive Date: 20110727
  Receipt Date: 20110714
  Transmission Date: 20111222
  Serious: Yes (Hospitalization, Other)
  Sender: FDA-Public Use
  Company Number: US-CELGENEUS-163-21880-11053559

PATIENT
  Sex: Male

DRUGS (4)
  1. VELCADE [Concomitant]
     Indication: MULTIPLE MYELOMA
     Route: 065
  2. DEXMETHASONE [Concomitant]
     Indication: MULTIPLE MYELOMA
     Route: 065
  3. REVLIMID [Suspect]
     Indication: MULTIPLE MYELOMA
     Dosage: 15 MILLIGRAM
     Route: 048
     Dates: start: 20100801
  4. REVLIMID [Suspect]
     Dosage: 5 MILLIGRAM
     Route: 048
     Dates: start: 20110401

REACTIONS (3)
  - IMPAIRED HEALING [None]
  - LUMBAR VERTEBRAL FRACTURE [None]
  - FALL [None]
